FAERS Safety Report 14508746 (Version 1)
Quarter: 2018Q1

REPORT INFORMATION
  Report Type: Report from Study
  Country: None (occurrence: GR)
  Receive Date: 20180209
  Receipt Date: 20180209
  Transmission Date: 20180509
  Serious: Yes (Death, Hospitalization)
  Sender: FDA-Public Use
  Company Number: GR-ABBVIE-18K-066-2250869-00

PATIENT
  Age: 86 Year
  Sex: Female

DRUGS (5)
  1. SEROLUX [Concomitant]
     Active Substance: SERTRALINE HYDROCHLORIDE
     Indication: DEPRESSION
     Route: 048
  2. ARTICLOX [Concomitant]
     Indication: ANAEMIA
     Route: 050
  3. FLUDEX (INDAPAMIDE) [Concomitant]
     Active Substance: INDAPAMIDE
     Indication: HYPERTENSION
     Route: 048
  4. DUODOPA [Suspect]
     Active Substance: CARBIDOPA\LEVODOPA
     Indication: PARKINSON^S DISEASE
     Dosage: MORNING DOSE: 11.0ML; CONTINUOUS RATE 2.2ML/H;EXTRA DOSE: 1.5ML
     Route: 050
     Dates: start: 20151119
  5. NEXIUM [Concomitant]
     Active Substance: ESOMEPRAZOLE MAGNESIUM
     Indication: PROPHYLAXIS
     Route: 048

REACTIONS (2)
  - Hypophagia [Not Recovered/Not Resolved]
  - Respiratory tract infection [Fatal]

NARRATIVE: CASE EVENT DATE: 2018
